FAERS Safety Report 9391296 (Version 1)
Quarter: 2013Q3

REPORT INFORMATION
  Report Type: Spontaneous
  Country: SE (occurrence: SE)
  Receive Date: 20130709
  Receipt Date: 20130709
  Transmission Date: 20140515
  Serious: Yes (Hospitalization)
  Sender: FDA-Public Use
  Company Number: SE-JNJFOC-20130701560

PATIENT
  Age: 11 Year
  Sex: Male

DRUGS (4)
  1. REMICADE [Suspect]
     Indication: CROHN^S DISEASE
     Route: 042
     Dates: start: 20130228, end: 20130228
  2. REMICADE [Suspect]
     Indication: CROHN^S DISEASE
     Route: 042
     Dates: start: 201302
  3. SOLUCORTEF [Concomitant]
     Route: 065
  4. TAVEGYL [Concomitant]
     Route: 065

REACTIONS (10)
  - Throat tightness [Recovered/Resolved]
  - Hypotension [Recovering/Resolving]
  - Fatigue [Recovering/Resolving]
  - Body temperature increased [Recovering/Resolving]
  - Pallor [Recovering/Resolving]
  - Flushing [Recovering/Resolving]
  - Vomiting [Recovering/Resolving]
  - Headache [Recovering/Resolving]
  - Erythema [Recovering/Resolving]
  - Drug ineffective [Unknown]
